FAERS Safety Report 23286742 (Version 3)
Quarter: 2024Q1

REPORT INFORMATION
  Report Type: Spontaneous
  Country: CN (occurrence: CN)
  Receive Date: 20231212
  Receipt Date: 20240103
  Transmission Date: 20240410
  Serious: Yes (Hospitalization, Other)
  Sender: FDA-Public Use
  Company Number: CN-MLMSERVICE-20231127-4684983-1

PATIENT
  Age: 18 Year
  Sex: Female

DRUGS (2)
  1. TRIAMCINOLONE ACETONIDE [Suspect]
     Active Substance: TRIAMCINOLONE ACETONIDE
     Indication: Keloid scar
     Dosage: 0.2 ML (OF A MIXTURE OF LIDOCAINE (5 ML ? 0. 1 G) AND TRIAMCINOLONE ACETONIDE (1 ML ? 40 MG) WAS INJ
     Route: 065
     Dates: start: 20220614
  2. LIDOCAINE [Concomitant]
     Active Substance: LIDOCAINE
     Indication: Keloid scar
     Dosage: 0.2 ML, AT A RATIO OF 1:1
     Route: 065
     Dates: start: 20220614

REACTIONS (7)
  - Embolism arterial [Not Recovered/Not Resolved]
  - Inner ear disorder [Not Recovered/Not Resolved]
  - Deafness neurosensory [Not Recovered/Not Resolved]
  - Deafness [Not Recovered/Not Resolved]
  - Dizziness [Not Recovered/Not Resolved]
  - Ear pain [Not Recovered/Not Resolved]
  - Tinnitus [Not Recovered/Not Resolved]

NARRATIVE: CASE EVENT DATE: 20220614
